FAERS Safety Report 9817543 (Version 2)
Quarter: 2014Q1

REPORT INFORMATION
  Report Type: Spontaneous
  Country: SI (occurrence: SI)
  Receive Date: 20140115
  Receipt Date: 20140311
  Transmission Date: 20141002
  Serious: Yes (Hospitalization, Other)
  Sender: FDA-Public Use
  Company Number: SI-AMGEN-SVNSP2014002012

PATIENT
  Age: 72 Year
  Sex: Male
  Weight: 61 kg

DRUGS (3)
  1. NEULASTA [Suspect]
     Indication: OESOPHAGEAL CANCER METASTATIC
     Dosage: 6 MG, ONCE EVERY 3 WEEKS
     Route: 058
     Dates: start: 20131231, end: 20140108
  2. DOCETAXEL [Concomitant]
     Indication: OESOPHAGEAL CANCER METASTATIC
     Dosage: 65 MG, UNK
     Route: 042
  3. 5-FU                               /00098801/ [Concomitant]
     Indication: OESOPHAGEAL CANCER METASTATIC
     Dosage: 650 MG/DAY, 1-5 DAY

REACTIONS (6)
  - Oesophageal oedema [Unknown]
  - Dyspnoea [Recovered/Resolved]
  - Rash erythematous [Recovered/Resolved]
  - Urticaria [Recovered/Resolved]
  - Rash pruritic [Recovered/Resolved]
  - Dermatitis allergic [Recovered/Resolved]
